FAERS Safety Report 5189032-6 (Version None)
Quarter: 2006Q4

REPORT INFORMATION
  Report Type: 
  Country: None (occurrence: None)
  Receive Date: 20061215
  Receipt Date: 20061204
  Transmission Date: 20070319
  Serious: Yes (Hospitalization)
  Sender: FDA-Public Use
  Company Number: 2006149586

PATIENT
  Age: 59 Year
  Sex: Male

DRUGS (6)
  1. ETHANOL (ETHANOL) [Suspect]
  2. ACETAMINOPHEN [Suspect]
  3. TRAMADOL (TRAMADOL) [Suspect]
     Dosage: ORAL
     Route: 048
  4. VICODIN [Concomitant]
  5. SSRI (SSRI) [Concomitant]
  6. ANTIBIOTICS (ANTIBIOTICS) [Concomitant]

REACTIONS (10)
  - BLOOD ETHANOL INCREASED [None]
  - BODY TEMPERATURE INCREASED [None]
  - CONFUSIONAL STATE [None]
  - DEPRESSED MOOD [None]
  - DRUG TOXICITY [None]
  - HEPATOTOXICITY [None]
  - LETHARGY [None]
  - MENTAL STATUS CHANGES [None]
  - NAUSEA [None]
  - OVERDOSE [None]
